FAERS Safety Report 23368542 (Version 1)
Quarter: 2024Q1

REPORT INFORMATION
  Report Type: Spontaneous
  Country: US (occurrence: US)
  Receive Date: 20240105
  Receipt Date: 20240105
  Transmission Date: 20240410
  Serious: Yes (Other)
  Sender: FDA-Public Use
  Company Number: US-JNJFOC-20231282450

PATIENT
  Sex: Male

DRUGS (2)
  1. RISPERDAL [Suspect]
     Active Substance: RISPERIDONE
     Indication: Aggression
     Route: 048
  2. RISPERDAL [Suspect]
     Active Substance: RISPERIDONE
     Indication: Suicidal ideation

REACTIONS (5)
  - Hyperprolactinaemia [Unknown]
  - Overweight [Unknown]
  - Mood swings [Unknown]
  - Blood cholesterol increased [Unknown]
  - Increased appetite [Unknown]
